FAERS Safety Report 24170098 (Version 1)
Quarter: 2024Q3

REPORT INFORMATION
  Report Type: Spontaneous
  Country: FR (occurrence: FR)
  Receive Date: 20240803
  Receipt Date: 20240803
  Transmission Date: 20241017
  Serious: Yes (Hospitalization, Other)
  Sender: AUROBINDO
  Company Number: FR-AFSSAPS-BS2024000458

PATIENT
  Age: 87 Year
  Sex: Male
  Weight: 98 kg

DRUGS (2)
  1. CITALOPRAM [Suspect]
     Active Substance: CITALOPRAM\CITALOPRAM HYDROBROMIDE
     Indication: Dyspnoea
     Dosage: 20 MILLIGRAM, ONCE A DAY
     Route: 048
  2. LOVENOX [Suspect]
     Active Substance: ENOXAPARIN SODIUM
     Indication: Atrial fibrillation
     Dosage: 1 DOSAGE FORM, ONCE A DAY (LOVENOX 10 000 UI ANTI-XA/1 ML, SOLUTION INJECTABLE (S.C.) EN AMPOULE)
     Route: 058
     Dates: start: 20240430, end: 20240502

REACTIONS (1)
  - Haematemesis [Recovered/Resolved]

NARRATIVE: CASE EVENT DATE: 20240502
